FAERS Safety Report 8377242-6 (Version None)
Quarter: 2012Q2

REPORT INFORMATION
  Report Type: 
  Country: None (occurrence: None)
  Receive Date: 20120522
  Receipt Date: 20120516
  Transmission Date: 20120825
  Serious: Yes (Other)
  Sender: FDA-Public Use
  Company Number: PHHY2012CA023596

PATIENT
  Sex: Female

DRUGS (2)
  1. EXJADE [Suspect]
     Dosage: 850 MG, UNK
     Route: 048
  2. EXJADE [Suspect]
     Indication: MYELODYSPLASTIC SYNDROME
     Dosage: 800 MG, UNK
     Route: 048

REACTIONS (11)
  - CHEST PAIN [None]
  - MYALGIA [None]
  - FATIGUE [None]
  - URINE COLOUR ABNORMAL [None]
  - PYREXIA [None]
  - BONE PAIN [None]
  - INFLUENZA LIKE ILLNESS [None]
  - DIARRHOEA [None]
  - OROPHARYNGEAL PAIN [None]
  - PNEUMONIA [None]
  - PLEURISY [None]
